FAERS Safety Report 24302636 (Version 5)
Quarter: 2024Q4

REPORT INFORMATION
  Report Type: Spontaneous
  Country: ES (occurrence: ES)
  Receive Date: 20240910
  Receipt Date: 20241129
  Transmission Date: 20250114
  Serious: Yes (Other)
  Sender: NOVARTIS
  Company Number: ES-ACRAF SpA-2024-034720

PATIENT
  Age: 45 Year
  Sex: Male

DRUGS (15)
  1. CARBAMAZEPINE [Suspect]
     Active Substance: CARBAMAZEPINE
     Indication: Product used for unknown indication
     Dosage: 400 MG, QD
     Route: 065
  2. CARBAMAZEPINE [Suspect]
     Active Substance: CARBAMAZEPINE
     Dosage: 400 MG, QD
     Route: 065
  3. CARBAMAZEPINE [Suspect]
     Active Substance: CARBAMAZEPINE
     Dosage: 400 MG, QD
     Route: 065
     Dates: start: 20240716
  4. CENOBAMATE [Suspect]
     Active Substance: CENOBAMATE
     Indication: Epilepsy
     Dosage: 25 MG, QD
     Route: 048
     Dates: start: 20240605
  5. CENOBAMATE [Suspect]
     Active Substance: CENOBAMATE
     Dosage: 100 MG, QD
     Route: 065
  6. CENOBAMATE [Suspect]
     Active Substance: CENOBAMATE
     Dosage: 50 MG, QD, (HE INCREASED TO 50MG AFTER TWO WEEKS OF STARTING)
     Route: 065
  7. CENOBAMATE [Suspect]
     Active Substance: CENOBAMATE
     Dosage: 150 MG, QD
     Route: 065
  8. CENOBAMATE [Suspect]
     Active Substance: CENOBAMATE
     Dosage: 100 MG, QD
     Route: 065
  9. CLONAZEPAM [Concomitant]
     Active Substance: CLONAZEPAM
     Indication: Product used for unknown indication
     Dosage: 2 MG, QD
     Route: 065
  10. CLONAZEPAM [Concomitant]
     Active Substance: CLONAZEPAM
     Dosage: 1 MG, QD
     Route: 065
  11. BRIVARACETAM [Concomitant]
     Active Substance: BRIVARACETAM
     Indication: Product used for unknown indication
     Dosage: UNK, QD, (50-0-100MG)
     Route: 065
  12. BRIVARACETAM [Concomitant]
     Active Substance: BRIVARACETAM
     Dosage: 50 MG, QD, (50-0-50MG)
     Route: 065
  13. TOPIRAMATE [Concomitant]
     Active Substance: TOPIRAMATE
     Indication: Migraine
     Dosage: 50 MG, QD, (0-0-50MG)
     Route: 065
  14. MIRTAZAPINE [Concomitant]
     Active Substance: MIRTAZAPINE
     Indication: Anxiety
     Dosage: UNK (HE DOES NOT KNOW IF IT WAS PRESCRIBED SOME DAYS BEFORE OR AFTER STARTING CENOBAMATE)
     Route: 065
  15. MIRTAZAPINE [Concomitant]
     Active Substance: MIRTAZAPINE
     Indication: Depression

REACTIONS (22)
  - Erectile dysfunction [Not Recovered/Not Resolved]
  - Hepatic pain [Not Recovered/Not Resolved]
  - Chest discomfort [Not Recovered/Not Resolved]
  - Blood glucose increased [Not Recovered/Not Resolved]
  - Bradyphrenia [Not Recovered/Not Resolved]
  - Back pain [Not Recovered/Not Resolved]
  - Eye pain [Not Recovered/Not Resolved]
  - Abdominal discomfort [Unknown]
  - Vomiting [Recovered/Resolved]
  - Tremor [Not Recovered/Not Resolved]
  - Vision blurred [Not Recovered/Not Resolved]
  - Headache [Recovering/Resolving]
  - Blood cholesterol increased [Not Recovered/Not Resolved]
  - Depressed mood [Not Recovered/Not Resolved]
  - Fatigue [Not Recovered/Not Resolved]
  - Libido decreased [Not Recovered/Not Resolved]
  - Musculoskeletal stiffness [Not Recovered/Not Resolved]
  - Visual impairment [Not Recovered/Not Resolved]
  - Confusional state [Not Recovered/Not Resolved]
  - Speech disorder [Not Recovered/Not Resolved]
  - Paraesthesia [Not Recovered/Not Resolved]
  - Off label use [Not Recovered/Not Resolved]

NARRATIVE: CASE EVENT DATE: 20240605
